FAERS Safety Report 5692478-0 (Version None)
Quarter: 2008Q2

REPORT INFORMATION
  Report Type: 
  Country: None (occurrence: None)
  Receive Date: 20080402
  Receipt Date: 20070918
  Transmission Date: 20081010
  Serious: No
  Sender: FDA-Public Use
  Company Number: US-BAYER-US-2007-035177

PATIENT
  Age: 60 Year
  Sex: Male
  Weight: 96 kg

DRUGS (10)
  1. LEUKINE [Suspect]
     Indication: LUNG NEOPLASM MALIGNANT
     Route: 058
     Dates: start: 20070622, end: 20070706
  2. LEUKINE [Suspect]
     Dates: start: 20070712, end: 20070723
  3. LEUKINE [Suspect]
     Dates: start: 20070802, end: 20070813
  4. LEUKINE [Suspect]
     Dates: start: 20070917, end: 20070917
  5. LEUKINE [Suspect]
     Dates: start: 20070825, end: 20070905
  6. CISPLATIN [Concomitant]
     Route: 042
     Dates: start: 20070614
  7. ETOPOSIDE [Concomitant]
     Dates: start: 20070614
  8. EMEND [Concomitant]
  9. DECADRON /NET/ [Concomitant]
     Dosage: UNIT DOSE: 4 MG
  10. KYTRIL [Concomitant]

REACTIONS (3)
  - ABDOMINAL PAIN [None]
  - DIZZINESS [None]
  - HYPERHIDROSIS [None]
